FAERS Safety Report 5650598-0 (Version None)
Quarter: 2008Q1

REPORT INFORMATION
  Report Type: 
  Country: None (occurrence: None)
  Receive Date: 20080304
  Receipt Date: 20080304
  Transmission Date: 20080703
  Serious: Yes (Other)
  Sender: FDA-Public Use
  Company Number: None

PATIENT
  Age: 14 Year
  Sex: Male
  Weight: 58.0604 kg

DRUGS (1)
  1. TAMIFLU [Suspect]
     Indication: INFLUENZA
     Dosage: 75 MG  TWICE DAILY
     Dates: start: 20080216, end: 20080216

REACTIONS (9)
  - DELIRIUM [None]
  - DEPRESSION [None]
  - ERYTHEMA [None]
  - HALLUCINATION [None]
  - HALLUCINATION, VISUAL [None]
  - SCAR [None]
  - SCREAMING [None]
  - SLEEP TERROR [None]
  - SOMNOLENCE [None]
